FAERS Safety Report 4447195-1 (Version None)
Quarter: 2004Q3

REPORT INFORMATION
  Report Type: 
  Country: None (occurrence: None)
  Receive Date: 20040908
  Receipt Date: 20040908
  Transmission Date: 20050211
  Serious: Yes (Death)
  Sender: FDA-Public Use
  Company Number: None

PATIENT
  Sex: Male
  Weight: 71.6683 kg

DRUGS (12)
  1. IRESSA [Suspect]
     Indication: LUNG NEOPLASM MALIGNANT
     Dosage: 250 MG QD PO
     Route: 048
     Dates: start: 20040609, end: 20040729
  2. CARBOPLATIN [Suspect]
     Indication: LUNG NEOPLASM MALIGNANT
     Dosage: 220 MG
     Dates: start: 20040609, end: 20040728
  3. PACLITAXEL [Suspect]
     Indication: LUNG NEOPLASM MALIGNANT
     Dosage: 84 MG IV WEEKLY
     Route: 042
     Dates: start: 20040609, end: 20040728
  4. VITAMIN C [Concomitant]
  5. VITAMIN B COMPLEX CAP [Concomitant]
  6. CENTRUM [Concomitant]
  7. LYSINE [Concomitant]
  8. PROLINE [Concomitant]
  9. GREEN TEA EXTRACT [Concomitant]
  10. LALTRILE [Concomitant]
  11. MELATONIN [Concomitant]
  12. COQ10 [Concomitant]

REACTIONS (1)
  - PNEUMONIA [None]
